FAERS Safety Report 7918505-5 (Version None)
Quarter: 2011Q4

REPORT INFORMATION
  Report Type: 
  Country: None (occurrence: None)
  Receive Date: 20111116
  Receipt Date: 20111101
  Transmission Date: 20120403
  Serious: No
  Sender: FDA-Public Use
  Company Number: US-COVIDIEN/TYCO HEALTHCARE/MALLINCKRODT-T201102574

PATIENT
  Sex: Female

DRUGS (6)
  1. FENTANYL [Concomitant]
     Dosage: 75 UG/HR, 2 PATCHES EVERY 3 DAYS
     Route: 062
     Dates: start: 20111001
  2. CYMBALTA [Concomitant]
     Indication: DEPRESSION
     Dosage: 30 MG, QD
  3. XANAX [Concomitant]
     Indication: ANXIETY
     Dosage: 1 MG, QD, PRN
  4. PERCOCET [Concomitant]
     Indication: BREAKTHROUGH PAIN
  5. THYROID THERAPY [Concomitant]
     Indication: THYROIDECTOMY
     Dosage: UNK, QD
  6. FENTANYL-100 [Suspect]
     Indication: PAIN
     Dosage: 75 UG/HR, 2-75 UG/HR PATCHES, EVERY 3 DAYS
     Dates: start: 20111001

REACTIONS (5)
  - APPLICATION SITE ERYTHEMA [None]
  - APPLICATION SITE EXFOLIATION [None]
  - INCORRECT DRUG ADMINISTRATION DURATION [None]
  - APPLICATION SITE PRURITUS [None]
  - APPLICATION SITE VESICLES [None]
